FAERS Safety Report 5961164-1 (Version None)
Quarter: 2008Q4

REPORT INFORMATION
  Report Type: 
  Country: None (occurrence: None)
  Receive Date: 20081119
  Receipt Date: 20081114
  Transmission Date: 20090506
  Serious: Yes (Death)
  Sender: FDA-Public Use
  Company Number: 2008SP023249

PATIENT
  Age: 54 Year
  Sex: Male

DRUGS (1)
  1. TEMODAL [Suspect]
     Indication: LUNG CANCER METASTATIC
     Dosage: 360 MG; QD; PO
     Route: 048
     Dates: start: 20081001

REACTIONS (1)
  - DEATH [None]
